FAERS Safety Report 7297998-3 (Version None)
Quarter: 2011Q1

REPORT INFORMATION
  Report Type: 
  Country: None (occurrence: None)
  Receive Date: 20110217
  Receipt Date: 20110214
  Transmission Date: 20110831
  Serious: No
  Sender: FDA-Public Use
  Company Number: US-PFIZER INC-2011032572

PATIENT
  Sex: Female
  Weight: 60.771 kg

DRUGS (4)
  1. ZOLOFT [Suspect]
     Indication: PREMENSTRUAL SYNDROME
  2. TYLENOL [Concomitant]
     Dosage: UNK
  3. ZOLOFT [Suspect]
     Indication: DEPRESSION
     Dosage: 20 MG, UNK
     Dates: start: 20110101, end: 20110201
  4. VITAMIN D [Concomitant]
     Dosage: UNK

REACTIONS (1)
  - PSYCHOMOTOR HYPERACTIVITY [None]
